FAERS Safety Report 6228141-7 (Version None)
Quarter: 2009Q2

REPORT INFORMATION
  Report Type: 
  Country: None (occurrence: None)
  Receive Date: 20090612
  Receipt Date: 20090606
  Transmission Date: 20091009
  Serious: Yes (Death, Hospitalization)
  Sender: FDA-Public Use
  Company Number: IN-AVENTIS-200915870GDDC

PATIENT
  Age: 50 Year
  Sex: Male
  Weight: 45 kg

DRUGS (3)
  1. DOCETAXEL [Suspect]
     Dosage: DOSE: CUMMULATIVE DOSE 300 MG
     Route: 042
     Dates: start: 20090311
  2. PROXYVON                           /00016701/ [Concomitant]
     Indication: PAIN
     Dates: start: 20090304, end: 20090310
  3. CODE UNBROKEN [Concomitant]
     Dates: start: 20090311

REACTIONS (1)
  - CARDIAC FAILURE CONGESTIVE [None]
